FAERS Safety Report 12473200 (Version 4)
Quarter: 2017Q1

REPORT INFORMATION
  Report Type: Spontaneous
  Country: US (occurrence: US)
  Receive Date: 20160616
  Receipt Date: 20170201
  Transmission Date: 20170428
  Serious: Yes (Death, Other)
  Sender: FDA-Public Use
  Company Number: US-009507513-1602USA011065

PATIENT
  Age: 67 Year
  Sex: Male

DRUGS (1)
  1. KEYTRUDA [Suspect]
     Active Substance: PEMBROLIZUMAB
     Indication: BLADDER CANCER
     Dosage: 100 MG, EVERY 3 WEEKS (THE PATIENT HAD DONE 5 CYCLES)
     Route: 042
     Dates: start: 201406, end: 20160621

REACTIONS (8)
  - Joint fluid drainage [Not Recovered/Not Resolved]
  - Product use issue [Unknown]
  - Malignant neoplasm progression [Unknown]
  - Death [Fatal]
  - Lung neoplasm malignant [Unknown]
  - Weight increased [Not Recovered/Not Resolved]
  - Lymphadenectomy [Not Recovered/Not Resolved]
  - Drug dose omission [Unknown]

NARRATIVE: CASE EVENT DATE: 201406
